FAERS Safety Report 5913835-0 (Version None)
Quarter: 2008Q4

REPORT INFORMATION
  Report Type: 
  Country: None (occurrence: None)
  Receive Date: 20081009
  Receipt Date: 20081001
  Transmission Date: 20090506
  Serious: Yes (Other)
  Sender: FDA-Public Use
  Company Number: A0746310A

PATIENT
  Age: 35 Year
  Sex: Female

DRUGS (7)
  1. EPZICOM [Suspect]
     Indication: HIV INFECTION
     Route: 048
     Dates: start: 20080701, end: 20080807
  2. REYATAZ [Concomitant]
     Indication: HIV INFECTION
     Dosage: 300MG PER DAY
     Route: 048
  3. METFORMIN HCL [Concomitant]
  4. MEVACOR [Concomitant]
  5. TRAVATAN [Concomitant]
  6. TRIMETHOPRIM + SULFAMETHOXAZOLE [Concomitant]
  7. NORVIR [Concomitant]
     Indication: HIV INFECTION
     Dosage: 300MG PER DAY
     Route: 048
     Dates: start: 20080701

REACTIONS (12)
  - CHEILITIS [None]
  - DRY SKIN [None]
  - EYE DISCHARGE [None]
  - EYELID FUNCTION DISORDER [None]
  - LIP SWELLING [None]
  - MOUTH ULCERATION [None]
  - OCULAR ICTERUS [None]
  - PHARYNGEAL ERYTHEMA [None]
  - RASH [None]
  - SCLERAL DISCOLOURATION [None]
  - SKIN EXFOLIATION [None]
  - STOMATITIS [None]
